FAERS Safety Report 9357488 (Version 2)
Quarter: 2013Q3

REPORT INFORMATION
  Report Type: Spontaneous
  Country: GB (occurrence: GB)
  Receive Date: 20130620
  Receipt Date: 20130716
  Transmission Date: 20140515
  Serious: Yes (Other)
  Sender: FDA-Public Use
  Company Number: PHFR2013GB002906

PATIENT
  Age: 32 Year
  Sex: Male

DRUGS (7)
  1. CLOZARIL [Suspect]
     Indication: SCHIZOPHRENIA
     Dosage: UNK
     Route: 048
     Dates: start: 20130504
  2. CLOZARIL [Suspect]
     Dosage: 150 MG, UNK
     Dates: end: 20130515
  3. SULPRIDE [Concomitant]
     Indication: SCHIZOPHRENIA
     Dosage: 1200 MG, DAILY
     Route: 048
  4. DIAZEPAM [Concomitant]
     Indication: ANXIETY
     Dosage: 30 MG, DAILY
     Route: 048
  5. CAMCOLIT [Concomitant]
     Indication: AFFECTIVE DISORDER
     Dosage: 1.2 G, DAILY
     Route: 048
  6. CITALOPRAM [Concomitant]
     Indication: DEPRESSION
     Dosage: 10 MG, DAILY
     Route: 048
  7. DISULFIRAM [Concomitant]
     Indication: ALCOHOLISM
     Dosage: 200 MG, DAILY
     Route: 048

REACTIONS (3)
  - Blood pressure abnormal [Recovered/Resolved]
  - Cardiac disorder [Unknown]
  - Tachycardia [Recovered/Resolved]
